FAERS Safety Report 7700463-X (Version None)
Quarter: 2011Q3

REPORT INFORMATION
  Report Type: 
  Country: None (occurrence: None)
  Receive Date: 20110822
  Receipt Date: 20110811
  Transmission Date: 20111222
  Serious: No
  Sender: FDA-Public Use
  Company Number: TR-JNJFOC-20110806750

PATIENT
  Age: 4 Decade
  Sex: Female

DRUGS (2)
  1. DURAGESIC-100 [Suspect]
     Route: 062
     Dates: start: 20110810
  2. DURAGESIC-100 [Suspect]
     Indication: PAIN
     Dosage: THE PATCH WAS USED FOR 24 HOURS ONLY.
     Route: 062
     Dates: start: 20110809, end: 20110810

REACTIONS (4)
  - INAPPROPRIATE SCHEDULE OF DRUG ADMINISTRATION [None]
  - VOMITING [None]
  - SEDATION [None]
  - NAUSEA [None]
